FAERS Safety Report 7587173-7 (Version None)
Quarter: 2011Q3

REPORT INFORMATION
  Report Type: 
  Country: None (occurrence: None)
  Receive Date: 20110701
  Receipt Date: 20110619
  Transmission Date: 20111222
  Serious: Yes (Death)
  Sender: FDA-Public Use
  Company Number: US-WATSON-2011-09074

PATIENT
  Sex: Female

DRUGS (1)
  1. FENTANYL-75 [Suspect]
     Indication: BACK PAIN
     Dosage: 1 PATCH Q 72 HOURS
     Route: 062
     Dates: start: 20090225, end: 20090308

REACTIONS (6)
  - ACCIDENTAL OVERDOSE [None]
  - TOXICITY TO VARIOUS AGENTS [None]
  - IRRITABILITY [None]
  - FEELING ABNORMAL [None]
  - PAIN [None]
  - VOMITING [None]
